FAERS Safety Report 6264207-3 (Version None)
Quarter: 2009Q3

REPORT INFORMATION
  Report Type: 
  Country: None (occurrence: None)
  Receive Date: 20090710
  Receipt Date: 20090707
  Transmission Date: 20100115
  Serious: Yes (Other)
  Sender: FDA-Public Use
  Company Number: US-ASTRAZENECA-2009UW11996

PATIENT
  Age: 44 Year
  Sex: Male
  Weight: 87.5 kg

DRUGS (8)
  1. SEROQUEL [Suspect]
     Indication: SCHIZOPHRENIA
     Dosage: 300 MG TO 1200 MG
     Route: 048
     Dates: start: 20021108, end: 20090201
  2. ZYPREXA [Concomitant]
     Dates: start: 19990101, end: 20000101
  3. ABILIFY [Concomitant]
     Dates: start: 20090401
  4. LAMOTRIGINE [Concomitant]
     Dates: start: 20080101, end: 20090201
  5. XANAX [Concomitant]
     Dates: start: 20090101
  6. PROZAC [Concomitant]
     Dates: start: 20090101, end: 20090201
  7. DEPAKOTE [Concomitant]
     Dates: start: 20080101
  8. WELLBUTRIN [Concomitant]
     Dates: start: 20090101

REACTIONS (3)
  - BLOOD CHOLESTEROL INCREASED [None]
  - CARDIAC DISORDER [None]
  - TYPE 2 DIABETES MELLITUS [None]
